FAERS Safety Report 19574666 (Version 1)
Quarter: 2021Q3

REPORT INFORMATION
  Report Type: Spontaneous
  Country: US (occurrence: US)
  Receive Date: 20210719
  Receipt Date: 20210719
  Transmission Date: 20211014
  Serious: No
  Sender: FDA-Public Use
  Company Number: US-AUROBINDO-AUR-APL-2020-036804

PATIENT
  Age: 21 Year
  Sex: Female
  Weight: 49 kg

DRUGS (3)
  1. OXCARBAZEPINE. [Concomitant]
     Active Substance: OXCARBAZEPINE
     Indication: PRODUCT USED FOR UNKNOWN INDICATION
     Dosage: UNK
     Route: 065
  2. ATOMOXETINE CAPSULES USP 25 MG [Suspect]
     Active Substance: ATOMOXETINE
     Indication: ATTENTION DEFICIT HYPERACTIVITY DISORDER
     Dosage: 1 DOSAGE FORM, DAILY (AT NIGHT)
     Route: 048
  3. ACIPHEX [Concomitant]
     Active Substance: RABEPRAZOLE SODIUM
     Indication: GASTROOESOPHAGEAL REFLUX DISEASE
     Dosage: UNK
     Route: 065

REACTIONS (3)
  - Product quality issue [Unknown]
  - Feeling abnormal [Recovered/Resolved]
  - Fall [Recovered/Resolved]

NARRATIVE: CASE EVENT DATE: 20200703
